FAERS Safety Report 18430035 (Version 1)
Quarter: 2020Q4

REPORT INFORMATION
  Report Type: Spontaneous
  Country: TW (occurrence: TW)
  Receive Date: 20201027
  Receipt Date: 20201027
  Transmission Date: 20210114
  Serious: No
  Sender: FDA-Public Use
  Company Number: TW-LUPIN PHARMACEUTICALS INC.-2020-05968

PATIENT
  Age: 35 Year
  Sex: Female

DRUGS (3)
  1. HYDROXYCHLOROQUINE [Suspect]
     Active Substance: HYDROXYCHLOROQUINE
     Indication: MYOPATHY
     Dosage: UNK
     Route: 065
  2. AZATHIOPRINE. [Concomitant]
     Active Substance: AZATHIOPRINE
     Indication: MYOPATHY
     Dosage: UNK
     Route: 065
  3. METHOTREXATE. [Concomitant]
     Active Substance: METHOTREXATE
     Indication: MYOPATHY
     Dosage: UNK
     Route: 065

REACTIONS (1)
  - Off label use [Unknown]
